FAERS Safety Report 7385267-2 (Version None)
Quarter: 2011Q1

REPORT INFORMATION
  Report Type: 
  Country: None (occurrence: None)
  Receive Date: 20110330
  Receipt Date: 20100223
  Transmission Date: 20110831
  Serious: No
  Sender: FDA-Public Use
  Company Number: US-MYLANLABS-2010S1003041

PATIENT
  Age: 62 Year
  Sex: Female

DRUGS (4)
  1. LITHIUM [Concomitant]
     Indication: DEPRESSION
     Route: 048
  2. EMSAM [Suspect]
     Indication: DEPRESSION
     Dosage: CHANGED Q24H
     Route: 062
     Dates: start: 20060101
  3. ASPIRIN [Concomitant]
     Route: 048
  4. ATACAND [Concomitant]
     Indication: BLOOD PRESSURE INCREASED
     Route: 048

REACTIONS (3)
  - DEPRESSION [None]
  - DRUG EFFECT DECREASED [None]
  - INCORRECT PRODUCT STORAGE [None]
